FAERS Safety Report 4504848-4 (Version None)
Quarter: 2004Q3

REPORT INFORMATION
  Report Type: 
  Country: None (occurrence: None)
  Receive Date: 20040927
  Receipt Date: 20040811
  Transmission Date: 20050211
  Serious: No
  Sender: FDA-Public Use
  Company Number: USA040875276

PATIENT
  Age: 50 Year
  Sex: Female
  Weight: 80 kg

DRUGS (5)
  1. STRATTERA [Suspect]
     Indication: ATTENTION DEFICIT/HYPERACTIVITY DISORDER
     Dosage: 18 MG/ 1 DAY
     Dates: start: 20040727
  2. BUSPIRONE [Concomitant]
  3. PROTRIPTYLINE [Concomitant]
  4. TRAZODONE HCL [Concomitant]
  5. LORAZEPAM [Concomitant]

REACTIONS (2)
  - ABDOMINAL DISTENSION [None]
  - VISION BLURRED [None]
